FAERS Safety Report 24724993 (Version 2)
Quarter: 2024Q4

REPORT INFORMATION
  Report Type: Spontaneous
  Country: JP (occurrence: JP)
  Receive Date: 20241212
  Receipt Date: 20241224
  Transmission Date: 20250115
  Serious: Yes (Death, Hospitalization)
  Sender: ASTELLAS
  Company Number: JP-ASTELLAS-2024-AER-023895

PATIENT
  Age: 66 Year
  Sex: Male

DRUGS (2)
  1. PADCEV [Suspect]
     Active Substance: ENFORTUMAB VEDOTIN\ENFORTUMAB VEDOTIN-EJFV
     Indication: Malignant neoplasm of renal pelvis
     Route: 042
  2. KEYTRUDA [Concomitant]
     Active Substance: PEMBROLIZUMAB
     Indication: Product used for unknown indication
     Route: 065

REACTIONS (1)
  - Skin disorder [Fatal]
